FAERS Safety Report 7906664-X (Version None)
Quarter: 2011Q4

REPORT INFORMATION
  Report Type: 
  Country: None (occurrence: None)
  Receive Date: 20111110
  Receipt Date: 20111107
  Transmission Date: 20120403
  Serious: Yes (Death)
  Sender: FDA-Public Use
  Company Number: US-SANOFI-AVENTIS-2011SA068667

PATIENT
  Age: 46 Year
  Sex: Male
  Weight: 73.4 kg

DRUGS (1)
  1. ELOXATIN [Suspect]
     Dosage: PATIENT ONLY REVEIVED 1 DOSE
     Route: 041
     Dates: start: 20111011, end: 20111011

REACTIONS (1)
  - COLON CANCER METASTATIC [None]
